FAERS Safety Report 9292914 (Version 1)
Quarter: 2013Q2

REPORT INFORMATION
  Report Type: Spontaneous
  Country: US (occurrence: None)
  Receive Date: 20130513
  Receipt Date: 20130513
  Transmission Date: 20140414
  Serious: Yes (Other)
  Sender: FDA-Public Use
  Company Number: AUR-APL-2013-03927

PATIENT
  Age: 46 Year
  Sex: Male
  Weight: 11.57 kg

DRUGS (7)
  1. METOPROLOL [Suspect]
     Indication: HYPERTENSION
     Route: 048
     Dates: end: 2010
  2. NITROSTAT [Suspect]
     Indication: CHEST PAIN
     Route: 060
     Dates: start: 2010
  3. NORVASC (AMLODIPINE BESILATE) [Suspect]
     Indication: HYPERTENSION
     Route: 048
     Dates: end: 2010
  4. NEURONTIN (GABAPENTIN) [Concomitant]
  5. NEXIUM (ESOMEPRAZOLE MAGNESIUM) [Concomitant]
  6. ASPIRIN (ACETYLSALICYLIC ACID) [Concomitant]
  7. CRESTOR (ROSUVASTATIN CALCIUM) [Concomitant]

REACTIONS (2)
  - Therapy cessation [None]
  - Myocardial infarction [None]
